FAERS Safety Report 19462946 (Version 4)
Quarter: 2021Q3

REPORT INFORMATION
  Report Type: Spontaneous
  Country: US (occurrence: US)
  Receive Date: 20210625
  Receipt Date: 20210830
  Transmission Date: 20211014
  Serious: Yes (Hospitalization)
  Sender: FDA-Public Use
  Company Number: US-CELGENEUS-USA-20210605418

PATIENT
  Age: 66 Year
  Sex: Male
  Weight: 65.38 kg

DRUGS (16)
  1. REVLIMID [Suspect]
     Active Substance: LENALIDOMIDE
     Indication: PLASMA CELL MYELOMA
     Dosage: 25 MILLIGRAM
     Route: 048
     Dates: start: 201404
  2. VITAMIN B12 [Concomitant]
     Active Substance: CYANOCOBALAMIN
     Indication: PRODUCT USED FOR UNKNOWN INDICATION
     Route: 065
  3. REVLIMID [Suspect]
     Active Substance: LENALIDOMIDE
     Dosage: 5 MILLIGRAM
     Route: 048
     Dates: start: 201903
  4. POTASSIUM [Concomitant]
     Active Substance: POTASSIUM
     Indication: PRODUCT USED FOR UNKNOWN INDICATION
     Dosage: 595 (99) MG
     Route: 048
  5. REVLIMID [Suspect]
     Active Substance: LENALIDOMIDE
     Dosage: 10?5 MILLIGRAM
     Route: 048
     Dates: start: 201908
  6. TAFINLAR [Suspect]
     Active Substance: DABRAFENIB MESYLATE
     Indication: PRODUCT USED FOR UNKNOWN INDICATION
     Route: 065
  7. ENOXAPARIN [Concomitant]
     Active Substance: ENOXAPARIN
     Indication: PRODUCT USED FOR UNKNOWN INDICATION
     Route: 065
  8. OXYCODONE HYDROCHLORIDE. [Concomitant]
     Active Substance: OXYCODONE HYDROCHLORIDE
     Indication: PRODUCT USED FOR UNKNOWN INDICATION
     Route: 065
  9. POTASSIUM GLUCONATE [Concomitant]
     Active Substance: POTASSIUM GLUCONATE
     Indication: PRODUCT USED FOR UNKNOWN INDICATION
     Route: 065
  10. REVLIMID [Suspect]
     Active Substance: LENALIDOMIDE
     Indication: METASTATIC MALIGNANT MELANOMA
     Dosage: 10?7.5 MG
     Route: 048
     Dates: start: 201410
  11. REVLIMID [Suspect]
     Active Substance: LENALIDOMIDE
     Dosage: 7.5?5 MG
     Route: 048
     Dates: start: 201704
  12. ZOFRAN [Concomitant]
     Active Substance: ONDANSETRON HYDROCHLORIDE
     Indication: PRODUCT USED FOR UNKNOWN INDICATION
     Route: 065
  13. REVLIMID [Suspect]
     Active Substance: LENALIDOMIDE
     Dosage: 5 MILLIGRAM
     Route: 048
     Dates: start: 202012
  14. REVLIMID [Suspect]
     Active Substance: LENALIDOMIDE
     Dosage: 10?7.5 MG
     Route: 048
     Dates: start: 201706
  15. REVLIMID [Suspect]
     Active Substance: LENALIDOMIDE
     Dosage: 5?10 MG
     Route: 048
     Dates: start: 201512
  16. REVLIMID [Suspect]
     Active Substance: LENALIDOMIDE
     Dosage: 5 MILLIGRAM
     Route: 048
     Dates: start: 20190627

REACTIONS (10)
  - Upper limb fracture [Unknown]
  - Nausea [Unknown]
  - Drug ineffective [Unknown]
  - Fall [Unknown]
  - Fatigue [Unknown]
  - Vomiting [Unknown]
  - Balance disorder [Unknown]
  - Hip fracture [Unknown]
  - Cardiac failure congestive [Unknown]
  - Weight decreased [Unknown]

NARRATIVE: CASE EVENT DATE: 20210719
